FAERS Safety Report 24764968 (Version 1)
Quarter: 2024Q4

REPORT INFORMATION
  Report Type: Spontaneous
  Country: CA (occurrence: CA)
  Receive Date: 20241223
  Receipt Date: 20241223
  Transmission Date: 20250115
  Serious: Yes (Hospitalization)
  Sender: TEVA
  Company Number: CA-TEVA-VS-3278777

PATIENT
  Age: 82 Year
  Sex: Male
  Weight: 76 kg

DRUGS (6)
  1. BENDAMUSTINE HYDROCHLORIDE [Suspect]
     Active Substance: BENDAMUSTINE HYDROCHLORIDE
     Indication: Non-Hodgkin^s lymphoma
     Dosage: DOSE FORM : POWDER FOR SOLUTION INTRAVENOUS BENDAMUSTINE HYDROCHLORIDE FOR INJECTION
     Route: 042
  2. CITALOPRAM [Concomitant]
     Active Substance: CITALOPRAM
     Indication: Product used for unknown indication
     Route: 065
  3. DEXILANT [Concomitant]
     Active Substance: DEXLANSOPRAZOLE
     Indication: Product used for unknown indication
     Dosage: DOSE FORM : CAPSULE, DELAYED RELEASE
     Route: 065
  4. BISOPROLOL [Concomitant]
     Active Substance: BISOPROLOL
     Indication: Product used for unknown indication
     Route: 065
  5. IRON [Concomitant]
     Active Substance: IRON
     Indication: Product used for unknown indication
     Route: 065
  6. RUXIENCE [Suspect]
     Active Substance: RITUXIMAB-PVVR
     Indication: Non-Hodgkin^s lymphoma
     Dosage: DOSE FORM : SOLUTION INTRAVENOUS
     Route: 042

REACTIONS (2)
  - Febrile neutropenia [Recovered/Resolved]
  - Blood bilirubin increased [Recovered/Resolved]
